FAERS Safety Report 16609936 (Version 1)
Quarter: 2019Q3

REPORT INFORMATION
  Report Type: Spontaneous
  Country: US (occurrence: US)
  Receive Date: 20190722
  Receipt Date: 20190722
  Transmission Date: 20191004
  Serious: No
  Sender: FDA-Public Use
  Company Number: US-HORIZON-PEN-0674-2019

PATIENT
  Age: 63 Year
  Sex: Male

DRUGS (1)
  1. PENNSAID [Suspect]
     Active Substance: DICLOFENAC SODIUM
     Indication: ARTHRALGIA
     Dosage: 1 PUMP BID AS NEEDED
     Dates: start: 201803

REACTIONS (3)
  - Intentional product use issue [Unknown]
  - Rash [Recovered/Resolved]
  - Device defective [Unknown]
